FAERS Safety Report 5430411-7 (Version None)
Quarter: 2007Q3

REPORT INFORMATION
  Report Type: 
  Country: None (occurrence: None)
  Receive Date: 20070828
  Receipt Date: 20070816
  Transmission Date: 20080115
  Serious: Yes (Other)
  Sender: FDA-Public Use
  Company Number: 100#03#2007-03119

PATIENT
  Age: 47 Year
  Sex: Male

DRUGS (4)
  1. CIPROFLOXACIN HCL [Suspect]
     Indication: EPIDIDYMAL INFECTION
     Dosage: 500MG TWICE A DAY
  2. CLOZAPINE [Suspect]
     Indication: SCHIZOPHRENIA, PARANOID TYPE
     Dosage: 750MG, REDUCED TO 450MG
  3. AMISULPRIDE(AMISULPRIDE) (AMISULPRIDE) [Concomitant]
  4. LORAZEPAM [Concomitant]

REACTIONS (5)
  - ANTIPSYCHOTIC DRUG LEVEL ABOVE THERAPEUTIC [None]
  - DRUG INTERACTION [None]
  - ESCHERICHIA INFECTION [None]
  - ORCHITIS [None]
  - TACHYCARDIA [None]
